FAERS Safety Report 9248689 (Version 6)
Quarter: 2013Q3

REPORT INFORMATION
  Report Type: Spontaneous
  Country: US (occurrence: US)
  Receive Date: 20130423
  Receipt Date: 20130827
  Transmission Date: 20140515
  Serious: Yes (Hospitalization, Other)
  Sender: FDA-Public Use
  Company Number: US-009507513-1304USA011769

PATIENT
  Age: 55 Year
  Sex: Male
  Weight: 68.27 kg

DRUGS (9)
  1. PEGINTRON [Suspect]
     Indication: HEPATITIS C
     Dosage: REDIPEN
     Dates: start: 20130325, end: 20130418
  2. REBETOL [Suspect]
     Indication: HEPATITIS C
     Dosage: 200 MG, QID
     Route: 048
     Dates: start: 20130325, end: 20130418
  3. REBETOL [Suspect]
     Dosage: UNK
     Dates: start: 201305, end: 20130530
  4. PEGASYS [Suspect]
     Indication: HEPATITIS C
     Dosage: UNK
     Dates: start: 20130325, end: 20130516
  5. PEGASYS [Suspect]
     Dosage: UNK
     Dates: start: 201305, end: 20130530
  6. INSULIN [Concomitant]
     Indication: DIABETES MELLITUS
     Dosage: UNK
  7. PRINIVIL [Concomitant]
  8. PRISTIQ [Concomitant]
  9. METFORMIN [Concomitant]

REACTIONS (47)
  - Diabetes mellitus inadequate control [Unknown]
  - Weight decreased [Unknown]
  - Weight decreased [Unknown]
  - Hyperglycaemia [Unknown]
  - Hyperglycaemia [Unknown]
  - Blood glucose increased [Unknown]
  - Bronchitis [Unknown]
  - Mental impairment [Unknown]
  - Confusional state [Unknown]
  - Blood disorder [Unknown]
  - Memory impairment [Unknown]
  - Mental status changes [Unknown]
  - Alanine aminotransferase increased [Recovering/Resolving]
  - Aspartate aminotransferase increased [Recovering/Resolving]
  - Hyperglycaemia [Unknown]
  - Dysgeusia [Unknown]
  - Mood swings [Unknown]
  - Insomnia [Unknown]
  - Depressed level of consciousness [Unknown]
  - Somnolence [Unknown]
  - Contusion [Unknown]
  - Dyspepsia [Unknown]
  - Depressed level of consciousness [Unknown]
  - Disorientation [Unknown]
  - Memory impairment [Unknown]
  - Hyperglycaemia [Unknown]
  - Somnolence [Unknown]
  - Blood glucose increased [Unknown]
  - Blood glucose increased [Unknown]
  - Psoriasis [Unknown]
  - Rash [Unknown]
  - Malaise [Unknown]
  - Abdominal pain [Unknown]
  - Abdominal pain [Unknown]
  - Decreased appetite [Unknown]
  - Decreased appetite [Unknown]
  - Fatigue [Unknown]
  - Asthenia [Unknown]
  - Injection site reaction [Unknown]
  - Nausea [Unknown]
  - Nausea [Unknown]
  - Gastrointestinal disorder [Unknown]
  - Anxiety [Unknown]
  - Tension [Unknown]
  - Feeling abnormal [Unknown]
  - Personality disorder [Unknown]
  - Abdominal discomfort [Unknown]
